FAERS Safety Report 23939598 (Version 1)
Quarter: 2024Q2

REPORT INFORMATION
  Report Type: Report from Study
  Country: ES (occurrence: ES)
  Receive Date: 20240605
  Receipt Date: 20240605
  Transmission Date: 20240715
  Serious: Yes (Other)
  Sender: FDA-Public Use
  Company Number: ES-AMGEN-ESPNI2024107394

PATIENT
  Age: 67 Year
  Sex: Male
  Weight: 87.5 kg

DRUGS (14)
  1. BEVACIZUMAB [Suspect]
     Active Substance: BEVACIZUMAB
     Indication: Non-small cell lung cancer metastatic
     Dosage: 660 MILLIGRAM
     Route: 065
     Dates: start: 20211109
  2. ATEZOLIZUMAB [Suspect]
     Active Substance: ATEZOLIZUMAB
     Indication: Non-small cell lung cancer metastatic
     Dosage: 1200 MILLIGRAM, Q3WK, ON 171JUN/2022 AND 23/AUG/2022, MOST RECENT DOSE OF ATEZOLIZUMAB PRIOR TO AE (
     Route: 040
     Dates: start: 20211109
  3. CARBOPLATIN [Suspect]
     Active Substance: CARBOPLATIN
     Indication: Non-small cell lung cancer metastatic
     Route: 065
     Dates: start: 20211109
  4. PACLITAXEL [Suspect]
     Active Substance: PACLITAXEL
     Indication: Non-small cell lung cancer metastatic
     Route: 065
     Dates: start: 20211109
  5. TORSEMIDE [Concomitant]
     Active Substance: TORSEMIDE
     Dosage: UNK UNK, QD
     Dates: start: 20150427
  6. IXEKIZUMAB [Concomitant]
     Active Substance: IXEKIZUMAB
     Dosage: UNK UNK, QMO
     Dates: start: 20220207, end: 20220420
  7. APIXABAN [Concomitant]
     Active Substance: APIXABAN
     Dosage: UNK UNK, BID
     Dates: start: 20210217
  8. FLECAINIDE [Concomitant]
     Active Substance: FLECAINIDE
     Dosage: UNK UNK, BID
     Dates: start: 20210217
  9. VALSARTANA + ANLODIPINO [Concomitant]
     Dosage: UNK UNK, QD
     Dates: start: 20111220
  10. ATORVASTATIN [Concomitant]
     Active Substance: ATORVASTATIN
     Dosage: UNK UNK, QD
     Dates: start: 20171004
  11. BEMIPARIN [Concomitant]
     Active Substance: BEMIPARIN
     Dosage: UNK UNK, QD
     Dates: start: 20210927
  12. ISONIAZID [Concomitant]
     Active Substance: ISONIAZID
     Dosage: UNK UNK, QD
     Dates: start: 20210423
  13. LANSOPRAZOLE [Concomitant]
     Active Substance: LANSOPRAZOLE
     Dosage: UNK UNK, QD
     Dates: start: 20171004
  14. ATARAX [Concomitant]
     Active Substance: HYDROXYZINE HYDROCHLORIDE
     Indication: Prophylaxis
     Dosage: UNK UNK, TID
     Dates: start: 20220328

REACTIONS (4)
  - Neurotoxicity [Recovered/Resolved]
  - Psoriasis [Not Recovered/Not Resolved]
  - Arthralgia [Not Recovered/Not Resolved]
  - Productive cough [Not Recovered/Not Resolved]

NARRATIVE: CASE EVENT DATE: 20220117
